FAERS Safety Report 9901002 (Version 1)
Quarter: 2014Q1

REPORT INFORMATION
  Report Type: Report from Study
  Country: US (occurrence: US)
  Receive Date: 20140217
  Receipt Date: 20140217
  Transmission Date: 20141002
  Serious: No
  Sender: FDA-Public Use
  Company Number: US-ABBVIE-13P-163-1088709-00

PATIENT
  Age: 54 Year
  Sex: Female
  Weight: 75.82 kg

DRUGS (8)
  1. SIMCOR 500/20 [Suspect]
     Indication: BLOOD CHOLESTEROL INCREASED
     Dosage: 500/20 MG
     Dates: start: 20130208
  2. SIMCOR 500/20 [Suspect]
     Indication: BLOOD TRIGLYCERIDES INCREASED
  3. LISINOPRIL [Concomitant]
     Indication: PRODUCT USED FOR UNKNOWN INDICATION
  4. ASA [Concomitant]
     Indication: PRODUCT USED FOR UNKNOWN INDICATION
     Dosage: LOW DOSE
  5. VITAMIN (UNSURE IF B3 OR D3) [Concomitant]
     Indication: PRODUCT USED FOR UNKNOWN INDICATION
  6. COQ10 [Concomitant]
     Indication: PRODUCT USED FOR UNKNOWN INDICATION
  7. TYLENOL ARTHRITIS [Concomitant]
     Indication: PRODUCT USED FOR UNKNOWN INDICATION
  8. ZAVANTAN (PATIENT UNSURE OF SPELLING) [Concomitant]
     Indication: GLAUCOMA
     Dosage: EYE DROPS

REACTIONS (8)
  - Muscle twitching [Recovered/Resolved]
  - Flushing [Recovered/Resolved]
  - Flushing [Unknown]
  - Nausea [Recovered/Resolved]
  - Diarrhoea [Recovered/Resolved]
  - Dizziness [Recovered/Resolved]
  - Presyncope [Recovered/Resolved]
  - Hyperhidrosis [Recovered/Resolved]
